FAERS Safety Report 8618656-6 (Version None)
Quarter: 2012Q3

REPORT INFORMATION
  Report Type: 
  Country: None (occurrence: None)
  Receive Date: 20120824
  Receipt Date: 20120820
  Transmission Date: 20120928
  Serious: Yes (Death, Hospitalization, Other)
  Sender: FDA-Public Use
  Company Number: US-TEVA-355123USA

PATIENT
  Age: 20 Year
  Sex: Male

DRUGS (7)
  1. ETOPOSIDE [Suspect]
     Indication: TESTICULAR GERM CELL CANCER METASTATIC
     Route: 065
  2. VINBLASTINE SULFATE [Suspect]
     Indication: TESTICULAR GERM CELL CANCER METASTATIC
     Route: 065
  3. LEVETIRACETAM [Concomitant]
     Indication: CONVULSION PROPHYLAXIS
     Route: 065
  4. CISPLATIN [Suspect]
     Indication: TESTICULAR GERM CELL CANCER METASTATIC
     Dosage: ADMINISTERED WITH ETOPOSIDE AND BLEOMYCIN (2 CYCLES), THEN VINBLASTINE AND IFOSFAMIDE (1 CYCLE)
     Route: 065
  5. IFOSFAMIDE [Suspect]
     Indication: TESTICULAR GERM CELL CANCER METASTATIC
     Route: 065
  6. BLEOMYCIN SULFATE [Suspect]
     Indication: TESTICULAR GERM CELL CANCER METASTATIC
     Route: 065
  7. DEXAMETHASONE [Concomitant]
     Indication: PROPHYLAXIS
     Route: 065

REACTIONS (4)
  - RESPIRATORY FAILURE [None]
  - METASTASES TO LUNG [None]
  - DISEASE PROGRESSION [None]
  - HYPOXIA [None]
